FAERS Safety Report 9637383 (Version 2)
Quarter: 2013Q4

REPORT INFORMATION
  Report Type: Report from Study
  Country: CA (occurrence: CA)
  Receive Date: 20131022
  Receipt Date: 20131022
  Transmission Date: 20140711
  Serious: Yes (Other)
  Sender: FDA-Public Use
  Company Number: PHHY2013CA114501

PATIENT
  Age: 53 Year
  Sex: Male

DRUGS (13)
  1. CLOZARIL [Suspect]
     Indication: SCHIZOAFFECTIVE DISORDER
     Dosage: 300 MG, QD
     Route: 048
     Dates: start: 20130913
  2. CLOZARIL [Suspect]
     Dosage: 50 MG, QD
     Route: 048
     Dates: start: 20130930
  3. FENTANYL TRANSDERMAL SYSTEM [Suspect]
     Dosage: 25 MG, EVERY 72 HRS
     Route: 062
  4. FENTANYL TRANSDERMAL SYSTEM [Suspect]
     Dosage: 75 MG, EVERY 72 HRS
     Route: 062
  5. PROPRANOLOL [Concomitant]
     Dosage: 30 MG, QD
  6. VENTOLIN                           /00942701/ [Concomitant]
     Dosage: UNK, QID (PRN)
  7. ASA [Concomitant]
     Dosage: 81 MG, UNK
  8. PANTOLOC ^BYK GULDEN^ [Concomitant]
     Dosage: 40 MG, BID
     Route: 048
  9. ADVAIR [Concomitant]
     Dosage: 1 DF, BID
  10. NORFLEX [Concomitant]
     Dosage: 100 MG, BID
  11. NICOTINE [Concomitant]
     Dosage: UNK UKN, UNK
  12. TRAZODONE [Concomitant]
     Dosage: 100 MG, AT BEDTIME
  13. SPIRIVA [Concomitant]
     Dosage: 1 DF, QD (PUFFS)

REACTIONS (7)
  - Hypoxia [Recovered/Resolved]
  - Unresponsive to stimuli [Recovered/Resolved]
  - Convulsion [Recovered/Resolved]
  - Syncope [Recovered/Resolved]
  - Confusional state [Recovered/Resolved]
  - Lethargy [Recovered/Resolved]
  - Cerebrovascular accident [Recovered/Resolved]
